FAERS Safety Report 8800081 (Version 1)
Quarter: 2012Q4

REPORT INFORMATION
  Report Type: 
  Country: US (occurrence: US)
  Receive Date: 20120921
  Receipt Date: 20120921
  Transmission Date: 20130627
  Serious: Yes (Hospitalization)
  Sender: FDA-Public Use
  Company Number: PHEH2012US018346

PATIENT
  Age: 72 Year
  Sex: Female

DRUGS (1)
  1. RECLAST [Suspect]
     Indication: OSTEOPOROSIS
     Dosage: 5 mg, yearly
     Route: 042
     Dates: start: 20120821

REACTIONS (8)
  - Mental status changes [Recovering/Resolving]
  - Confusional state [Recovering/Resolving]
  - Dysarthria [Recovering/Resolving]
  - Delusion [Recovering/Resolving]
  - Thrombosis [Recovering/Resolving]
  - Oedema peripheral [Recovering/Resolving]
  - Muscular weakness [Recovering/Resolving]
  - Renal failure acute [Recovered/Resolved]
